FAERS Safety Report 7981285-1 (Version None)
Quarter: 2011Q4

REPORT INFORMATION
  Report Type: 
  Country: None (occurrence: None)
  Receive Date: 20111215
  Receipt Date: 20111213
  Transmission Date: 20120403
  Serious: No
  Sender: FDA-Public Use
  Company Number: US-PFIZER INC-2011286084

PATIENT
  Sex: Female
  Weight: 68.934 kg

DRUGS (24)
  1. CHANTIX [Suspect]
     Dosage: 1 MG, 1X/DAY
     Route: 048
     Dates: start: 20111101
  2. VITAMIN D [Concomitant]
     Dosage: UNK
  3. OMEPRAZOLE [Concomitant]
     Indication: FLATULENCE
  4. CELEXA [Suspect]
     Dosage: 20 MG, DAILY
     Route: 048
  5. LEVOXYL [Concomitant]
     Indication: HYPOTHYROIDISM
     Dosage: 88 UG, 1X/DAY
  6. TRAMADOL [Concomitant]
     Indication: PAIN
     Dosage: UNK
  7. IRON [Concomitant]
     Dosage: UNK
  8. CHANTIX [Suspect]
     Indication: SMOKING CESSATION THERAPY
     Dosage: 0.5 MG, 1X/DAY
     Route: 048
     Dates: start: 20111103, end: 20111101
  9. CELEXA [Suspect]
     Dosage: 40 MG, DAILY
     Route: 048
     Dates: start: 20111101
  10. LOSARTAN [Concomitant]
     Indication: HYPERTENSION
     Dosage: 25 MG, 1X/DAY
  11. THEOPHYLLINE-SR [Concomitant]
     Indication: CHRONIC OBSTRUCTIVE PULMONARY DISEASE
     Dosage: 200 MG, UNK
  12. LAMOTRIGINE [Concomitant]
     Dosage: 25 MG, UNK
  13. TOPIRAMATE [Concomitant]
     Dosage: 50 MG, UNK
  14. XANAX [Concomitant]
     Indication: ANXIETY
     Dosage: 0.5 MG, UNK
  15. OMEPRAZOLE [Concomitant]
     Indication: GASTROOESOPHAGEAL REFLUX DISEASE
     Dosage: 20 MG, 1X/DAY
  16. ARICEPT [Concomitant]
     Dosage: 10 MG, UNK
  17. CHANTIX [Suspect]
     Dosage: 1 MG, 2X/DAY
     Route: 048
     Dates: start: 20111101, end: 20111101
  18. CELEXA [Suspect]
     Indication: BIPOLAR DISORDER
     Dosage: 10 MG, DAILY
     Route: 048
  19. BENZONATATE [Concomitant]
     Indication: CHRONIC OBSTRUCTIVE PULMONARY DISEASE
     Dosage: 200 MG, 1X/DAY
  20. XANAX [Concomitant]
     Indication: BIPOLAR DISORDER
  21. LUTEIN [Concomitant]
     Indication: CATARACT
     Dosage: UNK
  22. ASCORBIC ACID [Concomitant]
     Dosage: UNK
  23. ENABLEX [Concomitant]
     Indication: HYPERTONIC BLADDER
     Dosage: 7.5 MG, UNK
  24. CITALOPRAM [Concomitant]
     Dosage: 40 MG, UNK

REACTIONS (7)
  - PHOTOSENSITIVITY REACTION [None]
  - STRESS [None]
  - SOMNOLENCE [None]
  - ANXIETY [None]
  - FATIGUE [None]
  - INCORRECT DOSE ADMINISTERED [None]
  - TREMOR [None]
